FAERS Safety Report 9144530 (Version 8)
Quarter: 2013Q3

REPORT INFORMATION
  Report Type: Report from Study
  Country: CA (occurrence: CA)
  Receive Date: 20130306
  Receipt Date: 20130830
  Transmission Date: 20140515
  Serious: Yes (Hospitalization, Other)
  Sender: FDA-Public Use
  Company Number: CA-ROCHE-1196746

PATIENT
  Age: 48 Year
  Sex: Female
  Weight: 81.6 kg

DRUGS (12)
  1. RITUXAN [Suspect]
     Indication: RHEUMATOID ARTHRITIS
     Dosage: DAY 1 AND DAY 15?DATE OF THE LAST DOSE  RECIEVED PRIOR TO THE ADVERSE EVENT: 14/FEB/2013.
     Route: 042
     Dates: start: 20090709
  2. RITUXAN [Suspect]
     Route: 042
     Dates: start: 20130214
  3. TYLENOL [Concomitant]
     Indication: PREMEDICATION
     Route: 048
     Dates: start: 20090709
  4. BENADRYL [Concomitant]
     Indication: PREMEDICATION
     Route: 048
     Dates: start: 20090709
  5. SOLU-MEDROL [Concomitant]
     Indication: PREMEDICATION
     Route: 042
     Dates: start: 20090709
  6. CELEBREX [Concomitant]
  7. ELTROXIN [Concomitant]
  8. MICARDIS [Concomitant]
     Indication: HYPERTENSION
  9. NORVASC [Concomitant]
     Indication: HYPERTENSION
  10. CYMBALTA [Concomitant]
  11. VENTOLIN [Concomitant]
  12. FLOVENT [Concomitant]

REACTIONS (9)
  - Gastroenteritis viral [Recovered/Resolved]
  - Blood potassium decreased [Not Recovered/Not Resolved]
  - Blood magnesium decreased [Not Recovered/Not Resolved]
  - Pneumonia [Not Recovered/Not Resolved]
  - Rheumatoid arthritis [Unknown]
  - Fatigue [Unknown]
  - Asthenia [Unknown]
  - Lower respiratory tract infection [Not Recovered/Not Resolved]
  - Blood pressure increased [Not Recovered/Not Resolved]
